FAERS Safety Report 7629047-9 (Version None)
Quarter: 2011Q3

REPORT INFORMATION
  Report Type: 
  Country: None (occurrence: None)
  Receive Date: 20110722
  Receipt Date: 20110712
  Transmission Date: 20111222
  Serious: Yes (Congenital Anomaly, Other)
  Sender: FDA-Public Use
  Company Number: US-PFIZER INC-2010092596

PATIENT
  Sex: Male
  Weight: 3.5 kg

DRUGS (1)
  1. ZOLOFT [Suspect]
     Indication: DEPRESSION
     Dosage: UNK
     Route: 064
     Dates: start: 20050101, end: 20061201

REACTIONS (6)
  - PATENT DUCTUS ARTERIOSUS [None]
  - HYPOGLYCAEMIA NEONATAL [None]
  - ANOMALOUS PULMONARY VENOUS CONNECTION [None]
  - ATRIAL SEPTAL DEFECT [None]
  - MATERNAL EXPOSURE DURING PREGNANCY [None]
  - ATELECTASIS NEONATAL [None]
